FAERS Safety Report 8446149-8 (Version None)
Quarter: 2012Q2

REPORT INFORMATION
  Report Type: 
  Country: None (occurrence: None)
  Receive Date: 20120618
  Receipt Date: 20120614
  Transmission Date: 20120825
  Serious: No
  Sender: FDA-Public Use
  Company Number: US-PFIZER INC-2012144067

PATIENT
  Sex: Female
  Weight: 58.957 kg

DRUGS (3)
  1. BUTRANS [Concomitant]
     Indication: BACK PAIN
     Dosage: UNK, WEEKLY
  2. CELEBREX [Suspect]
     Indication: BACK PAIN
     Dosage: 200 MG, 1X/DAY
     Dates: start: 20120601
  3. CELEBREX [Suspect]
     Indication: ABDOMINAL PAIN UPPER

REACTIONS (4)
  - PAIN IN EXTREMITY [None]
  - GAIT DISTURBANCE [None]
  - ARTHRALGIA [None]
  - DRUG INEFFECTIVE [None]
